FAERS Safety Report 6882475-1 (Version None)
Quarter: 2010Q3

REPORT INFORMATION
  Report Type: 
  Country: None (occurrence: None)
  Receive Date: 20100729
  Receipt Date: 20100716
  Transmission Date: 20110219
  Serious: Yes (Hospitalization)
  Sender: FDA-Public Use
  Company Number: DE-BAYER-201033156GPV

PATIENT
  Age: 63 Year
  Sex: Female
  Weight: 76 kg

DRUGS (6)
  1. SORAFENIB OR PLACEBO [Suspect]
     Indication: PANCREATIC CARCINOMA
     Route: 048
     Dates: end: 20100629
  2. GEMCITABINE [Suspect]
     Indication: PANCREATIC CARCINOMA
     Dates: end: 20100610
  3. TOREM [Concomitant]
     Indication: CARDIOVASCULAR EVENT PROPHYLAXIS
     Dates: start: 20100429
  4. DELIX [Concomitant]
     Indication: CARDIOVASCULAR EVENT PROPHYLAXIS
     Dates: start: 20100429
  5. BISOPROLOL [Concomitant]
     Indication: CARDIOVASCULAR EVENT PROPHYLAXIS
  6. ARIXTRA [Concomitant]
     Indication: THROMBOSIS PROPHYLAXIS
     Dates: start: 20100511

REACTIONS (3)
  - CARDIAC FAILURE [None]
  - DYSPNOEA [None]
  - PLEURAL EFFUSION [None]
